FAERS Safety Report 11074919 (Version 1)
Quarter: 2015Q2

REPORT INFORMATION
  Report Type: Spontaneous
  Country: FR (occurrence: FR)
  Receive Date: 20150429
  Receipt Date: 20150429
  Transmission Date: 20150821
  Serious: Yes (Hospitalization, Other)
  Sender: FDA-Public Use
  Company Number: PHHY2015FR047452

PATIENT
  Age: 86 Year
  Sex: Female
  Weight: 49 kg

DRUGS (4)
  1. METYRAPONE [Interacting]
     Active Substance: METYRAPONE
     Indication: ECTOPIC ACTH SYNDROME
     Dosage: 1 G, QD
     Route: 065
  2. PARACETAMOL [Suspect]
     Active Substance: ACETAMINOPHEN
     Indication: NEUROENDOCRINE TUMOUR
     Dosage: 1 G, TID
     Route: 048
  3. METYRAPONE [Interacting]
     Active Substance: METYRAPONE
     Dosage: 4 G, QD
     Route: 065
  4. OCTREOTIDE [Concomitant]
     Active Substance: OCTREOTIDE
     Indication: ECTOPIC ACTH SYNDROME
     Route: 065

REACTIONS (5)
  - Toxicity to various agents [Recovered/Resolved]
  - Metabolic acidosis [Recovered/Resolved]
  - Tachypnoea [Recovered/Resolved]
  - Asthenia [Recovered/Resolved]
  - Drug interaction [Recovered/Resolved]
